FAERS Safety Report 4396194-7 (Version None)
Quarter: 2004Q3

REPORT INFORMATION
  Report Type: 
  Country: None (occurrence: None)
  Receive Date: 20040709
  Receipt Date: 20040429
  Transmission Date: 20050211
  Serious: Yes (Death)
  Sender: FDA-Public Use
  Company Number: 04P-163-0251566-00

PATIENT
  Age: 54 Year
  Sex: Male

DRUGS (3)
  1. RITONAVIR SOFT GELATIN CAPSULES (NORVIR) (RITONAVIR) [Suspect]
     Indication: HIV INFECTION
     Dosage: 400 MG, PER ORAL
     Route: 048
     Dates: start: 20040210, end: 20040221
  2. TIPRANAVIR [Concomitant]
  3. ENFUVIRTIDE [Concomitant]

REACTIONS (36)
  - ABDOMINAL PAIN [None]
  - ACUTE RESPIRATORY DISTRESS SYNDROME [None]
  - ATHEROSCLEROSIS [None]
  - BLOOD PRESSURE INCREASED [None]
  - CARDIAC MURMUR [None]
  - CARDIO-RESPIRATORY ARREST [None]
  - CHEST PAIN [None]
  - CHILLS [None]
  - CLOSTRIDIAL INFECTION [None]
  - CONVULSION [None]
  - CORONARY ARTERY DISEASE [None]
  - CORONARY ARTERY OCCLUSION [None]
  - DIARRHOEA [None]
  - DYSPHAGIA [None]
  - ELECTROMECHANICAL DISSOCIATION [None]
  - END STAGE AIDS [None]
  - EPIGASTRIC DISCOMFORT [None]
  - HAEMATEMESIS [None]
  - HEADACHE [None]
  - HEART RATE INCREASED [None]
  - LUNG INFECTION PSEUDOMONAL [None]
  - NAUSEA [None]
  - OESOPHAGEAL ULCER [None]
  - OSTEOPOROSIS [None]
  - PETECHIAE [None]
  - PNEUMOCYSTIS CARINII PNEUMONIA [None]
  - PNEUMONIA CYTOMEGALOVIRAL [None]
  - PSEUDOMONAL SEPSIS [None]
  - PYREXIA [None]
  - RHINORRHOEA [None]
  - SEPTIC SHOCK [None]
  - TACHYPNOEA [None]
  - TOXOPLASMA SEROLOGY POSITIVE [None]
  - VENTRICULAR HYPERTROPHY [None]
  - VOMITING [None]
  - WHITE BLOOD CELL COUNT DECREASED [None]
